FAERS Safety Report 17053557 (Version 3)
Quarter: 2020Q1

REPORT INFORMATION
  Report Type: Spontaneous
  Country: GB (occurrence: GB)
  Receive Date: 20191120
  Receipt Date: 20200226
  Transmission Date: 20200409
  Serious: Yes (Hospitalization, Other)
  Sender: FDA-Public Use
  Company Number: GB-PFIZER INC-2019500164

PATIENT
  Age: 44 Year
  Sex: Male
  Weight: 101.59 kg

DRUGS (3)
  1. CYTARABINE. [Suspect]
     Active Substance: CYTARABINE
     Indication: ACUTE MYELOID LEUKAEMIA
     Dosage: 10 MG, UNK
     Dates: start: 201903, end: 201908
  2. MYLOTARG [Suspect]
     Active Substance: GEMTUZUMAB OZOGAMICIN
     Indication: ACUTE MYELOID LEUKAEMIA
     Dosage: 10 MG, UNK
     Dates: start: 201903, end: 201908
  3. DAUNORUBICIN [Suspect]
     Active Substance: DAUNORUBICIN
     Indication: ACUTE MYELOID LEUKAEMIA
     Dosage: 10 MG, UNK
     Dates: start: 201903, end: 201908

REACTIONS (21)
  - Vitamin D deficiency [Unknown]
  - Tooth disorder [Unknown]
  - Depression [Unknown]
  - Epistaxis [Unknown]
  - Influenza [Unknown]
  - Cough [Unknown]
  - Anxiety [Unknown]
  - Pneumonia fungal [Recovered/Resolved]
  - Visual impairment [Unknown]
  - Febrile infection [Recovered/Resolved]
  - Escherichia infection [Recovered/Resolved]
  - Weight decreased [Recovered/Resolved]
  - Bone pain [Unknown]
  - Neuropathy peripheral [Not Recovered/Not Resolved]
  - Anal incontinence [Unknown]
  - Hypokalaemia [Recovered/Resolved]
  - Clostridium difficile infection [Recovered/Resolved]
  - Fatigue [Unknown]
  - Cognitive disorder [Unknown]
  - Gastroenteritis [Unknown]
  - Gait inability [Unknown]

NARRATIVE: CASE EVENT DATE: 201904
